FAERS Safety Report 12057598 (Version 5)
Quarter: 2016Q2

REPORT INFORMATION
  Report Type: Report from Study
  Country: US (occurrence: US)
  Receive Date: 20160209
  Receipt Date: 20160502
  Transmission Date: 20160815
  Serious: Yes (Hospitalization, Other)
  Sender: FDA-Public Use
  Company Number: US-ACTELION-A-NJ2015-116006

PATIENT
  Age: 73 Year
  Sex: Female

DRUGS (5)
  1. AMLODIPINE [Concomitant]
     Active Substance: AMLODIPINE BESYLATE
  2. MACITENTAN [Suspect]
     Active Substance: MACITENTAN
     Indication: PULMONARY ARTERIAL HYPERTENSION
     Dosage: 10 MG, QD
     Route: 048
     Dates: start: 20140127
  3. WARFARIN [Concomitant]
     Active Substance: WARFARIN
  4. TREPROSTINIL DIOLAMIN [Suspect]
     Active Substance: TREPROSTINIL DIOLAMINE
     Indication: PRODUCT USED FOR UNKNOWN INDICATION
     Dosage: 1.125 MG, UNK
     Route: 048
  5. MACITENTAN [Suspect]
     Active Substance: MACITENTAN
     Dosage: 10 MG, QD
     Route: 048

REACTIONS (15)
  - Nausea [Unknown]
  - Faeces soft [Unknown]
  - Vomiting [Unknown]
  - Abdominal discomfort [Unknown]
  - Malaise [Unknown]
  - Urinary tract infection [Not Recovered/Not Resolved]
  - Hypersomnia [Unknown]
  - Headache [Unknown]
  - Seizure [Unknown]
  - Tremor [Unknown]
  - Blood glucose decreased [Unknown]
  - Blood glucose fluctuation [Unknown]
  - Eating disorder [Unknown]
  - Decreased appetite [Unknown]
  - Dyspnoea [Unknown]
